FAERS Safety Report 7951228-5 (Version None)
Quarter: 2011Q4

REPORT INFORMATION
  Report Type: 
  Country: None (occurrence: None)
  Receive Date: 20111128
  Receipt Date: 20111115
  Transmission Date: 20120403
  Serious: Yes (Death)
  Sender: FDA-Public Use
  Company Number: JP-2011-2851

PATIENT
  Age: 76 Year
  Sex: Female

DRUGS (1)
  1. NAVELBINE [Suspect]
     Indication: LUNG NEOPLASM MALIGNANT

REACTIONS (14)
  - PERICARDIAL EFFUSION [None]
  - ALTERED STATE OF CONSCIOUSNESS [None]
  - VIITH NERVE PARALYSIS [None]
  - HEPATIC ENZYME INCREASED [None]
  - AORTIC DISSECTION [None]
  - CHEST PAIN [None]
  - BILIARY TRACT DISORDER [None]
  - PAIN [None]
  - NEUROPATHY PERIPHERAL [None]
  - ARRHYTHMIA [None]
  - EMBOLISM ARTERIAL [None]
  - RENAL DISORDER [None]
  - PLEURAL EFFUSION [None]
  - MELAENA [None]
